FAERS Safety Report 6773639-6 (Version None)
Quarter: 2010Q2

REPORT INFORMATION
  Report Type: 
  Country: None (occurrence: None)
  Receive Date: 20100614
  Receipt Date: 20100526
  Transmission Date: 20101027
  Serious: Yes (Other)
  Sender: FDA-Public Use
  Company Number: 220033J09GBR

PATIENT
  Age: 13 Year
  Sex: Male

DRUGS (1)
  1. SOMATROPIN RDNA [Suspect]
     Dosage: 1.2 MG, 7 IN 1 WK, SUBCUTANEOUS
     Route: 058
     Dates: start: 20090806

REACTIONS (4)
  - ABDOMINAL PAIN UPPER [None]
  - ANORECTAL DISORDER [None]
  - CROHN'S DISEASE [None]
  - PYREXIA [None]
